FAERS Safety Report 8758675 (Version 2)
Quarter: 2012Q4

REPORT INFORMATION
  Report Type: Spontaneous
  Country: ES (occurrence: None)
  Receive Date: 20120814
  Receipt Date: 20120827
  Transmission Date: 20130627
  Serious: Yes (Hospitalization)
  Sender: FDA-Public Use
  Company Number: 2012AP002365

PATIENT
  Age: 47 Year
  Sex: Female

DRUGS (3)
  1. CLARITHROMYCIN (CLARITHROMYCIN) [Suspect]
     Indication: HELICOBACTER PYLORI INFECTION
  2. OMEPRAZOLE (OMEPRAZOLE) [Suspect]
     Indication: HELICOBACTER PYLORI INFECTION
  3. AMOXICILLIN (AMOXICILLIN) [Suspect]
     Indication: HELICOBACTER PYLORI INFECTION

REACTIONS (2)
  - Bipolar I disorder [None]
  - Mania [None]
